FAERS Safety Report 8632480 (Version 2)
Quarter: 2012Q4

REPORT INFORMATION
  Report Type: 
  Country: US (occurrence: US)
  Receive Date: 20120625
  Receipt Date: 20120907
  Transmission Date: 20130627
  Serious: Yes (Hospitalization, Other)
  Sender: FDA-Public Use
  Company Number: US-BAYER-2012-060995

PATIENT
  Age: 35 Year
  Sex: Female
  Weight: 95.24 kg

DRUGS (19)
  1. YAZ [Suspect]
     Indication: CONTRACEPTION
     Dosage: UNK
     Dates: start: 20100223, end: 20100622
  2. YAZ [Suspect]
     Indication: PREMENSTRUAL SYNDROME
  3. FLUOXETINE [Concomitant]
     Indication: DEPRESSION
     Dosage: 10 mg, UNK
     Dates: start: 200810, end: 201007
  4. FLUTICASONE [Concomitant]
     Dosage: 50 ?g, UNK
     Dates: start: 200810, end: 201006
  5. PROVIGIL [Concomitant]
     Indication: NARCOLEPSY
     Dosage: 200 mg, UNK
     Dates: start: 201005, end: 201006
  6. PANTOPRAZOLE [Concomitant]
     Indication: GASTROOESOPHAGEAL REFLUX DISEASE
     Dosage: 40 mg, UNK
     Dates: start: 201005, end: 201006
  7. PRAMIPEXOLE [Concomitant]
     Indication: RESTLESS LEGS SYNDROME
     Dosage: 0.5 mg, UNK
     Dates: start: 200810, end: 201008
  8. VITAMIN C [Concomitant]
  9. ORTHO-TRI-CYCLEN LO [Concomitant]
  10. FLONASE [Concomitant]
  11. ANTIMIGRAINE PREPARATIONS [Concomitant]
  12. MULTIVITAMIN [Concomitant]
  13. ALPRAZOLAM [Concomitant]
  14. LORATADINE [Concomitant]
  15. ONDANSETRON [Concomitant]
  16. PROMETHAZINE [Concomitant]
  17. CLOPIDOGREL [Concomitant]
  18. LISINOPRIL [Concomitant]
  19. METOPROLOL [Concomitant]

REACTIONS (2)
  - Myocardial infarction [None]
  - Thrombosis [None]
